FAERS Safety Report 25573707 (Version 1)
Quarter: 2025Q3

REPORT INFORMATION
  Report Type: Spontaneous
  Country: US (occurrence: US)
  Receive Date: 20250717
  Receipt Date: 20250717
  Transmission Date: 20251020
  Serious: No
  Sender: SANOFI AVENTIS
  Company Number: US-SA-2025SA200272

PATIENT
  Age: 65 Year
  Sex: Male

DRUGS (24)
  1. SARCLISA [Suspect]
     Active Substance: ISATUXIMAB-IRFC
     Indication: Plasma cell myeloma
     Dosage: 500 MG, QOW
     Route: 041
     Dates: start: 20210126
  2. ABILIFY [Concomitant]
     Active Substance: ARIPIPRAZOLE
  3. ACYCLOVIR [Concomitant]
     Active Substance: ACYCLOVIR
  4. ASPIRIN [Concomitant]
     Active Substance: ASPIRIN
  5. DEXAMETHASONE [Concomitant]
     Active Substance: DEXAMETHASONE
  6. DITROPAN [Concomitant]
     Active Substance: OXYBUTYNIN CHLORIDE
  7. FLOMAX [Concomitant]
     Active Substance: TAMSULOSIN HYDROCHLORIDE
  8. GABAPENTIN [Concomitant]
     Active Substance: GABAPENTIN
  9. OMEPRAZOLE [Concomitant]
     Active Substance: OMEPRAZOLE
  10. LORAZEPAM [Concomitant]
     Active Substance: LORAZEPAM
  11. LISINOPRIL [Concomitant]
     Active Substance: LISINOPRIL
  12. LEXAPRO [Concomitant]
     Active Substance: ESCITALOPRAM OXALATE
  13. LAMICTAL [Concomitant]
     Active Substance: LAMOTRIGINE
  14. LEVEMIR [Concomitant]
     Active Substance: INSULIN DETEMIR
  15. STRATTERA [Concomitant]
     Active Substance: ATOMOXETINE HYDROCHLORIDE
  16. POMALYST [Concomitant]
     Active Substance: POMALIDOMIDE
  17. HUMALOG [Concomitant]
     Active Substance: INSULIN LISPRO
  18. KLOR-CON M10 [Concomitant]
     Active Substance: POTASSIUM CHLORIDE
  19. METFORMIN [Concomitant]
     Active Substance: METFORMIN HYDROCHLORIDE
  20. NICORETTE [Concomitant]
     Active Substance: NICOTINE
  21. TESTOSTERONE [Concomitant]
     Active Substance: TESTOSTERONE
  22. TIZANIDINE [Concomitant]
     Active Substance: TIZANIDINE
  23. WELLBUTRIN [Concomitant]
     Active Substance: BUPROPION HYDROCHLORIDE
  24. LIPITO M SR [Concomitant]

REACTIONS (1)
  - Weight increased [Not Recovered/Not Resolved]

NARRATIVE: CASE EVENT DATE: 20250702
